FAERS Safety Report 10161831 (Version 1)
Quarter: 2014Q2

REPORT INFORMATION
  Report Type: Spontaneous
  Country: US (occurrence: None)
  Receive Date: 20140507
  Receipt Date: 20140507
  Transmission Date: 20141212
  Serious: No
  Sender: FDA-Public Use
  Company Number: 2014-00055

PATIENT
  Age: 53 Year
  Sex: Female
  Weight: 96.62 kg

DRUGS (5)
  1. ZICAM COLD REMEDY RAPIDMELTS [Suspect]
     Indication: NASOPHARYNGITIS
     Dosage: 1 MELT ORALLY EVERY 3-6 HOURS?
     Route: 048
     Dates: start: 20140328, end: 20140402
  2. ZICAM COLD REMEDY RAPIDMELTS [Suspect]
     Indication: PROPHYLAXIS
     Dosage: 1 MELT ORALLY EVERY 3-6 HOURS?
     Route: 048
     Dates: start: 20140328, end: 20140402
  3. OMEPRAZOLE [Concomitant]
  4. MULTIVITAMIN [Concomitant]
  5. TAMOXIFEN [Concomitant]

REACTIONS (2)
  - Dysgeusia [None]
  - Ageusia [None]
